FAERS Safety Report 5739898-3 (Version None)
Quarter: 2008Q2

REPORT INFORMATION
  Report Type: 
  Country: None (occurrence: None)
  Receive Date: 20080513
  Receipt Date: 20080513
  Transmission Date: 20081010
  Serious: Yes (Hospitalization)
  Sender: FDA-Public Use
  Company Number: None

PATIENT
  Sex: Female
  Weight: 53.07 kg

DRUGS (2)
  1. CARBOPLATIN [Suspect]
     Dosage: 560.4 MG
  2. TAXOL [Suspect]
     Dosage: 274.75 MG

REACTIONS (10)
  - ABDOMINAL PAIN [None]
  - BLOOD CALCIUM ABNORMAL [None]
  - BLOOD PHOSPHORUS ABNORMAL [None]
  - BLOOD POTASSIUM ABNORMAL [None]
  - HAEMATOCRIT ABNORMAL [None]
  - HAEMOGLOBIN ABNORMAL [None]
  - INCISION SITE INFECTION [None]
  - PSEUDOMONAS INFECTION [None]
  - WHITE BLOOD CELL COUNT ABNORMAL [None]
  - WOUND INFECTION STAPHYLOCOCCAL [None]
